FAERS Safety Report 5223867-6 (Version None)
Quarter: 2007Q1

REPORT INFORMATION
  Report Type: 
  Country: None (occurrence: None)
  Receive Date: 20070130
  Receipt Date: 20070122
  Transmission Date: 20070707
  Serious: Yes (Hospitalization, Other)
  Sender: FDA-Public Use
  Company Number: GB-AVENTIS-200710184EU

PATIENT
  Age: 34 Year
  Sex: Female

DRUGS (5)
  1. ENOXAPARIN SODIUM [Suspect]
     Indication: THROMBOSIS PROPHYLAXIS
  2. DICLOFENAC SODIUM [Suspect]
     Indication: ANALGESIC THERAPY
  3. AUGMENTIN '125' [Suspect]
     Indication: PROPHYLAXIS
  4. GRANISETRON [Suspect]
  5. AMOXICILLIN + CLAVULANATE POTASSIUM [Suspect]
     Indication: PROPHYLAXIS
     Dosage: DOSE: 1 DF
     Route: 042

REACTIONS (8)
  - ACUTE GENERALISED EXANTHEMATOUS PUSTULOSIS [None]
  - ERYTHEMA [None]
  - MALAISE [None]
  - PYREXIA [None]
  - RASH [None]
  - SKIN EXFOLIATION [None]
  - SKIN OEDEMA [None]
  - TACHYCARDIA [None]
